FAERS Safety Report 4780953-2 (Version None)
Quarter: 2005Q3

REPORT INFORMATION
  Report Type: 
  Country: None (occurrence: None)
  Receive Date: 20050926
  Receipt Date: 20050926
  Transmission Date: 20060218
  Serious: No
  Sender: FDA-Public Use
  Company Number: None

PATIENT
  Age: 25 Year
  Sex: Male
  Weight: 81.6475 kg

DRUGS (3)
  1. DIAZEPAM [Suspect]
     Indication: MUSCLE SPASMS
     Dosage: 10MG IV
     Dates: start: 20050907
  2. DIAZEPAM [Suspect]
     Indication: PAIN
     Dosage: 10MG IV
     Dates: start: 20050907
  3. MORPHINE [Concomitant]

REACTIONS (3)
  - DRUG INEFFECTIVE [None]
  - NO THERAPEUTIC RESPONSE [None]
  - POOR QUALITY DRUG ADMINISTERED [None]
